FAERS Safety Report 4314759-5 (Version None)
Quarter: 2004Q1

REPORT INFORMATION
  Report Type: 
  Country: None (occurrence: None)
  Receive Date: 20040308
  Receipt Date: 20040223
  Transmission Date: 20041129
  Serious: Yes (Hospitalization)
  Sender: FDA-Public Use
  Company Number: 2004JP000348

PATIENT
  Age: 33 Year
  Sex: Female

DRUGS (11)
  1. PROGRAF [Suspect]
     Indication: RENAL TRANSPLANT
     Dosage: SEE IMAGE
     Dates: start: 20011220, end: 20011003
  2. PROGRAF [Suspect]
     Indication: RENAL TRANSPLANT
     Dosage: SEE IMAGE
     Dates: start: 20011216, end: 20011218
  3. PROGRAF [Suspect]
     Indication: RENAL TRANSPLANT
     Dosage: SEE IMAGE
     Dates: start: 20011218, end: 20011219
  4. PROGRAF [Suspect]
     Indication: RENAL TRANSPLANT
     Dosage: SEE IMAGE
     Dates: start: 20021004
  5. METHYLPREDNISOLONE [Concomitant]
  6. MIZORIBINE (MIZORIBINE) TABLET [Concomitant]
  7. ATELEC (CLINIDIPINE) TABLET [Concomitant]
  8. BLOPRESS (CANDESARTAN CILEXETIL) TABLET [Concomitant]
  9. TAKEPRON (LANSOPRAZOLE) CAPSULE [Concomitant]
  10. GASLON (IRSOGLADINE MALEATE) [Concomitant]
  11. DEPAS (ETIZOLAM) [Concomitant]

REACTIONS (1)
  - PYELONEPHRITIS [None]
